FAERS Safety Report 13196308 (Version 16)
Quarter: 2019Q4

REPORT INFORMATION
  Report Type: Spontaneous
  Country: US (occurrence: US)
  Receive Date: 20170208
  Receipt Date: 20191105
  Transmission Date: 20200122
  Serious: Yes (Hospitalization, Disabling, Other)
  Sender: FDA-Public Use
  Company Number: US-PFIZER INC-2017056064

PATIENT
  Age: 52 Year
  Sex: Female

DRUGS (43)
  1. DEPAKOTE [Concomitant]
     Active Substance: DIVALPROEX SODIUM
     Dosage: 250 MG, UNK
     Dates: start: 19990126
  2. DEPAKOTE [Concomitant]
     Active Substance: DIVALPROEX SODIUM
     Dosage: 250 MG, UNK
     Dates: start: 19990505
  3. SYNTHROID [Concomitant]
     Active Substance: LEVOTHYROXINE SODIUM
     Dosage: 0.3 MG, 3X/DAY
     Route: 048
     Dates: start: 19980826
  4. SYNTHROID [Concomitant]
     Active Substance: LEVOTHYROXINE SODIUM
     Dosage: 0.3 MG, 3X/DAY
     Route: 048
     Dates: start: 19991209
  5. SYNTHROID [Concomitant]
     Active Substance: LEVOTHYROXINE SODIUM
     Dosage: 100 UG, 1 TAB 1X/DAY
     Route: 048
     Dates: start: 20010116
  6. SYNTHROID [Concomitant]
     Active Substance: LEVOTHYROXINE SODIUM
     Dosage: UNK
     Dates: end: 20181017
  7. VESICARE [Concomitant]
     Active Substance: SOLIFENACIN SUCCINATE
     Dosage: 5 MG, 1 TABLET DAILY
     Route: 048
  8. DIVALPROEX [Concomitant]
     Active Substance: DIVALPROEX SODIUM
     Dosage: 1000 MG, DAILY
     Route: 048
     Dates: end: 20181017
  9. TEGRETOL [Concomitant]
     Active Substance: CARBAMAZEPINE
     Indication: EPILEPSY
     Dosage: UNK
     Dates: start: 1974, end: 1976
  10. DEPAKOTE [Concomitant]
     Active Substance: DIVALPROEX SODIUM
     Dosage: 250 MG, UNK
     Dates: start: 19980908
  11. DEPAKOTE [Concomitant]
     Active Substance: DIVALPROEX SODIUM
     Dosage: 2 DF, DAILY
     Dates: start: 1998
  12. SYNTHROID [Concomitant]
     Active Substance: LEVOTHYROXINE SODIUM
     Dosage: UNK
     Dates: start: 1971
  13. NORTRIPTYLINE [Concomitant]
     Active Substance: NORTRIPTYLINE
     Indication: ANTIDEPRESSANT THERAPY
     Dosage: UNK
     Dates: start: 2018
  14. PERCOCET [Concomitant]
     Active Substance: ACETAMINOPHEN\OXYCODONE HYDROCHLORIDE
     Indication: PAIN
     Dosage: 1 DF, AS NEEDED (1 TAB (5-325 MG) EVERY 4 HRS)
     Route: 048
     Dates: start: 20160517, end: 20160616
  15. DILANTIN-125 [Suspect]
     Active Substance: PHENYTOIN
     Indication: GENERALISED TONIC-CLONIC SEIZURE
     Dosage: 400 MG, DAILY
     Route: 048
     Dates: start: 19960621
  16. TEGRETOL [Concomitant]
     Active Substance: CARBAMAZEPINE
     Dosage: UNK
     Dates: start: 1997
  17. TEGRETOL [Concomitant]
     Active Substance: CARBAMAZEPINE
     Dosage: 100 MG, 3X/DAY
     Dates: start: 19970121
  18. DEPAKOTE [Concomitant]
     Active Substance: DIVALPROEX SODIUM
     Dosage: 250 MG, 3X/DAY
     Dates: start: 20020114
  19. DILANTIN [Suspect]
     Active Substance: PHENYTOIN
     Dosage: 100 MG, UNK
     Route: 048
  20. SYNTHROID [Concomitant]
     Active Substance: LEVOTHYROXINE SODIUM
     Indication: HYPOTHYROIDISM
     Dosage: 125 UG, 1 TAB 1X/DAY
     Route: 048
     Dates: end: 20181017
  21. SYNTHROID [Concomitant]
     Active Substance: LEVOTHYROXINE SODIUM
     Dosage: 100 UG, 1X/DAY
     Route: 048
     Dates: start: 20020114
  22. SYNTHROID [Concomitant]
     Active Substance: LEVOTHYROXINE SODIUM
     Dosage: 100 UG, 1X/DAY
     Route: 048
     Dates: start: 20030118
  23. GABAPENTIN. [Concomitant]
     Active Substance: GABAPENTIN
     Indication: SEIZURE
  24. ZOLOFT [Concomitant]
     Active Substance: SERTRALINE HYDROCHLORIDE
     Dosage: UNK
  25. DILANTIN-125 [Suspect]
     Active Substance: PHENYTOIN
     Indication: PETIT MAL EPILEPSY
     Dosage: 100 MG, UNK
     Route: 048
     Dates: start: 20100501
  26. DILANTIN-125 [Suspect]
     Active Substance: PHENYTOIN
     Dosage: 400 MG, 1X/DAY
     Dates: start: 199410, end: 1997
  27. DEPAKOTE [Concomitant]
     Active Substance: DIVALPROEX SODIUM
     Dosage: 250 MG, 3X/DAY
     Dates: start: 20010209
  28. DEPAKOTE [Concomitant]
     Active Substance: DIVALPROEX SODIUM
     Dosage: 500 MG, 2X/DAY
     Route: 048
  29. SYNTHROID [Concomitant]
     Active Substance: LEVOTHYROXINE SODIUM
     Dosage: 150 UG, 1 TAB 1X/DAY
     Route: 048
  30. SYNTHROID [Concomitant]
     Active Substance: LEVOTHYROXINE SODIUM
     Dosage: 0.3 MG, 3X/DAY
     Route: 048
     Dates: start: 19961022
  31. SYNTHROID [Concomitant]
     Active Substance: LEVOTHYROXINE SODIUM
     Dosage: UNK
     Dates: end: 20181017
  32. PHENOBARBITAL. [Concomitant]
     Active Substance: PHENOBARBITAL
     Indication: EPILEPSY
     Dosage: UNK
     Dates: start: 1974, end: 1976
  33. DEPAKOTE [Concomitant]
     Active Substance: DIVALPROEX SODIUM
     Dosage: 250 MG, UNK
     Dates: start: 19990827
  34. DULCOLAX NOS [Concomitant]
     Active Substance: BISACODYL OR DOCUSATE SODIUM
     Indication: LAXATIVE SUPPORTIVE CARE
     Dosage: 10 MG, 1X/DAY (RETAIN FOR 15-20 MINS) HOLD FOR LOOSE STOOL, DO NOT MORE THAN 1 WEEK
     Route: 054
     Dates: start: 20130526, end: 20181017
  35. DILANTIN [Suspect]
     Active Substance: PHENYTOIN
     Indication: EPILEPSY
     Dosage: UNK
     Dates: start: 1977, end: 1997
  36. TEGRETOL [Concomitant]
     Active Substance: CARBAMAZEPINE
     Dosage: 100 MG, 3X/DAY
     Dates: start: 19960806
  37. DEPAKOTE [Concomitant]
     Active Substance: DIVALPROEX SODIUM
     Indication: SEIZURE PROPHYLAXIS
     Dosage: 50 MG, 3X/DAY
  38. DEPAKOTE [Concomitant]
     Active Substance: DIVALPROEX SODIUM
     Dosage: 250 MG, UNK
     Dates: start: 19980602
  39. SYNTHROID [Concomitant]
     Active Substance: LEVOTHYROXINE SODIUM
     Dosage: 0.125 MG, 3X/DAY
     Dates: start: 19991216
  40. GABAPENTIN. [Concomitant]
     Active Substance: GABAPENTIN
     Indication: NEURALGIA
     Dosage: UNK
     Dates: start: 2018
  41. DEPAKOTE [Concomitant]
     Active Substance: DIVALPROEX SODIUM
     Indication: SEIZURE
     Dosage: 250 MG, 1 TAB. 3X/DAY
  42. RILUZOLE. [Concomitant]
     Active Substance: RILUZOLE
     Dosage: UNK
  43. ENULOSE [Concomitant]
     Active Substance: LACTULOSE
     Indication: CONSTIPATION
     Dosage: UNK, 2X/DAY (15-30 ML)
     Route: 048
     Dates: start: 20130526, end: 20181017

REACTIONS (20)
  - Coordination abnormal [Not Recovered/Not Resolved]
  - Muscular weakness [Not Recovered/Not Resolved]
  - Anxiety [Not Recovered/Not Resolved]
  - Cerebellar ataxia [Not Recovered/Not Resolved]
  - Balance disorder [Not Recovered/Not Resolved]
  - Impaired work ability [Unknown]
  - Dysarthria [Not Recovered/Not Resolved]
  - Vomiting [Unknown]
  - Incontinence [Unknown]
  - Cognitive disorder [Not Recovered/Not Resolved]
  - Amnesia [Not Recovered/Not Resolved]
  - Restless legs syndrome [Not Recovered/Not Resolved]
  - Headache [Not Recovered/Not Resolved]
  - Post concussion syndrome [Unknown]
  - Cerebellar atrophy [Not Recovered/Not Resolved]
  - Tremor [Not Recovered/Not Resolved]
  - Hippocampal atrophy [Unknown]
  - Neuropathy peripheral [Not Recovered/Not Resolved]
  - Gait disturbance [Not Recovered/Not Resolved]
  - Nausea [Unknown]

NARRATIVE: CASE EVENT DATE: 2015
